FAERS Safety Report 17114671 (Version 1)
Quarter: 2019Q4

REPORT INFORMATION
  Report Type: Spontaneous
  Country: NL (occurrence: NL)
  Receive Date: 20191205
  Receipt Date: 20191205
  Transmission Date: 20200122
  Serious: Yes (Life-Threatening, Hospitalization)
  Sender: FDA-Public Use
  Company Number: NL-MYLANLABS-2019M1119691

PATIENT
  Age: 68 Year
  Sex: Male

DRUGS (11)
  1. ACLIDINIUM W/FORMOTEROL [Concomitant]
     Dosage: 2 X PER DAG 1 DOSIS
  2. MEBEVERINE [Concomitant]
     Active Substance: MEBEVERINE
     Dosage: 1 X PER DAG 200 MILLIGRAM
  3. RABEPRAZOL                         /01417201/ [Concomitant]
     Dosage: 2 X PER DAG 20 MILLIGRAM
  4. CALCIUM CARBONATE W/COLECALCIFEROL [Concomitant]
     Active Substance: CALCIUM CARBONATE\CHOLECALCIFEROL
     Dosage: 1 X PER DAG 1 STUK/1,25G/800IE
     Route: 048
  5. SALBUTAMOL [Concomitant]
     Active Substance: ALBUTEROL
     Dosage: ZO NODIG 4 X PER DAG 1 DOSIS, ZO NODIG;
  6. RABEPRAZOLE [Suspect]
     Active Substance: RABEPRAZOLE
     Indication: PRODUCT USED FOR UNKNOWN INDICATION
     Dosage: 2D20MG
     Route: 048
     Dates: start: 2018, end: 20190711
  7. CLONAZEPAM. [Concomitant]
     Active Substance: CLONAZEPAM
     Dosage: 1 X PER DAG 1 MILLIGRAM
  8. PARACETAMOL TEVA [Concomitant]
     Dosage: ZO NODIG3XPER DAG 1000 MG ZELFZORGMIDDEL
  9. METAMUCIL [Concomitant]
     Active Substance: PLANTAGO SEED
     Dosage: 1 X PER DAG 1 STUK
  10. CHLOORTALIDON [Concomitant]
     Dosage: 1 X PER DAG 25 MILLIGRAM
  11. LOSARTAN. [Concomitant]
     Active Substance: LOSARTAN
     Dosage: 1 X PER DAG 100 MILLIGRAM

REACTIONS (2)
  - Hypocalcaemia [Recovering/Resolving]
  - Hypomagnesaemia [Recovering/Resolving]

NARRATIVE: CASE EVENT DATE: 2019
